FAERS Safety Report 11192520 (Version 3)
Quarter: 2015Q3

REPORT INFORMATION
  Report Type: Spontaneous
  Country: US (occurrence: US)
  Receive Date: 20150616
  Receipt Date: 20150729
  Transmission Date: 20151125
  Serious: No
  Sender: FDA-Public Use
  Company Number: US-PFIZER INC-2015197459

PATIENT
  Age: 66 Year
  Sex: Female
  Weight: 41 kg

DRUGS (10)
  1. ROPINIROLE. [Suspect]
     Active Substance: ROPINIROLE
     Indication: SPINAL DISORDER
  2. ROPINIROLE. [Suspect]
     Active Substance: ROPINIROLE
     Indication: INSOMNIA
     Dosage: UNK, DAILY IN THE EVENING
  3. FENOFIBRATE. [Concomitant]
     Active Substance: FENOFIBRATE
     Dosage: UNK
  4. PREMARIN [Concomitant]
     Active Substance: ESTROGENS, CONJUGATED
     Dosage: UNK
  5. CLONAZEPAM. [Concomitant]
     Active Substance: CLONAZEPAM
     Indication: INSOMNIA
     Dosage: UNK
  6. LYRICA [Suspect]
     Active Substance: PREGABALIN
     Indication: NERVE INJURY
     Dosage: 25 MG, 1X/DAY IN MORNING
     Dates: start: 2015, end: 2015
  7. MORPHINE [Concomitant]
     Active Substance: MORPHINE
     Dosage: 6 MG, UNK
  8. LYRICA [Suspect]
     Active Substance: PREGABALIN
     Dosage: 25 MG, 2X/DAY
     Dates: start: 2015
  9. LISINOPRIL. [Concomitant]
     Active Substance: LISINOPRIL
     Indication: HYPERTENSION
     Dosage: UNK
  10. CLONIDINE. [Concomitant]
     Active Substance: CLONIDINE
     Indication: HYPERTENSION
     Dosage: UNK

REACTIONS (3)
  - Insomnia [Unknown]
  - Somnolence [Unknown]
  - Malaise [Unknown]
